FAERS Safety Report 5118318-6 (Version None)
Quarter: 2006Q4

REPORT INFORMATION
  Report Type: 
  Country: None (occurrence: None)
  Receive Date: 20061002
  Receipt Date: 20060921
  Transmission Date: 20070319
  Serious: Yes (Other)
  Sender: FDA-Public Use
  Company Number: PHBS2006BR14600

PATIENT
  Age: 11 Year
  Sex: Male
  Weight: 32 kg

DRUGS (2)
  1. TEGRETOL [Suspect]
     Indication: CEREBRAL DISORDER
     Dosage: 400 MG/DAY
     Route: 048
  2. RIVOTRIL [Concomitant]
     Route: 065
     Dates: start: 20060901

REACTIONS (6)
  - ASTHENIA [None]
  - DISTURBANCE IN ATTENTION [None]
  - HALLUCINATION [None]
  - HYPOTENSION [None]
  - SLEEP DISORDER [None]
  - SOMNOLENCE [None]
